FAERS Safety Report 26194326 (Version 2)
Quarter: 2025Q4

REPORT INFORMATION
  Report Type: Spontaneous
  Country: US (occurrence: US)
  Receive Date: 20251224
  Receipt Date: 20251226
  Transmission Date: 20260118
  Serious: Yes (Other)
  Sender: APELLIS PHARMACEUTICALS
  Company Number: US-APELLIS-2025-APL-0002423

PATIENT

DRUGS (6)
  1. SYFOVRE [Suspect]
     Active Substance: PEGCETACOPLAN
     Indication: Dry age-related macular degeneration
     Route: 031
  2. MINERALS\VITAMINS [Concomitant]
     Active Substance: MINERALS\VITAMINS
     Indication: Product used for unknown indication
     Dosage: 250-90-40-1 MG CAPSULE: 1 TABLET TWICE A DAY
  3. HYDROCODONE [Concomitant]
     Active Substance: HYDROCODONE
     Indication: Product used for unknown indication
     Route: 065
  4. CELECOXIB [Concomitant]
     Active Substance: CELECOXIB
     Indication: Product used for unknown indication
     Dosage: 100.000MG
  5. DICLOFENAC SODIUM [Concomitant]
     Active Substance: DICLOFENAC SODIUM
     Indication: Product used for unknown indication
     Dosage: 75.000MG
  6. DOXYCYCLINE [Concomitant]
     Active Substance: DOXYCYCLINE
     Indication: Product used for unknown indication
     Dosage: 100.000MG

REACTIONS (12)
  - Uveitis [Unknown]
  - Vitreous detachment [Unknown]
  - Dry age-related macular degeneration [Unknown]
  - Disease progression [Unknown]
  - Neovascular age-related macular degeneration [Unknown]
  - Choroidal neovascularisation [Unknown]
  - Neovascular age-related macular degeneration [Unknown]
  - Choroidal neovascularisation [Unknown]
  - Vitreous floaters [Unknown]
  - Vitreal cells [Unknown]
  - Vision blurred [Unknown]
  - Vision blurred [Unknown]
